FAERS Safety Report 4804722-X (Version None)
Quarter: 2005Q4

REPORT INFORMATION
  Report Type: 
  Country: None (occurrence: None)
  Receive Date: 20051020
  Receipt Date: 20051010
  Transmission Date: 20060501
  Serious: Yes (Hospitalization)
  Sender: FDA-Public Use
  Company Number: FR-JNJFOC-20051002281

PATIENT
  Age: 40 Year
  Sex: Male
  Weight: 64 kg

DRUGS (8)
  1. RISPERDAL [Suspect]
     Route: 048
     Dates: start: 20041020, end: 20050916
  2. RISPERDAL [Suspect]
     Route: 048
     Dates: start: 20041020, end: 20050916
  3. TERCIAN [Interacting]
     Route: 048
  4. TERCIAN [Interacting]
     Route: 048
  5. TERCIAN [Interacting]
     Route: 048
  6. LEPTICUR [Concomitant]
     Route: 065
  7. MOGADON [Concomitant]
     Route: 065
  8. THERALENE [Concomitant]
     Route: 065

REACTIONS (3)
  - BLOOD CREATINE PHOSPHOKINASE INCREASED [None]
  - DRUG INTERACTION [None]
  - RHABDOMYOLYSIS [None]
